FAERS Safety Report 4675727-7 (Version None)
Quarter: 2005Q2

REPORT INFORMATION
  Report Type: 
  Country: None (occurrence: None)
  Receive Date: 20050527
  Receipt Date: 20050225
  Transmission Date: 20051028
  Serious: Yes (Other)
  Sender: FDA-Public Use
  Company Number: US-BRISTOL-MYERS SQUIBB COMPANY-12877965

PATIENT

DRUGS (1)
  1. ERBITUX [Suspect]
     Indication: COLON CANCER METASTATIC

REACTIONS (1)
  - DERMATITIS ACNEIFORM [None]
